FAERS Safety Report 8406376-2 (Version None)
Quarter: 2012Q2

REPORT INFORMATION
  Report Type: 
  Country: None (occurrence: None)
  Receive Date: 20120604
  Receipt Date: 20120531
  Transmission Date: 20120825
  Serious: Yes (Life-Threatening, Hospitalization, Other)
  Sender: FDA-Public Use
  Company Number: PHHY2012JP046719

PATIENT
  Sex: Female

DRUGS (3)
  1. ADRENOCORTICOTROPHIC HORMONE [Concomitant]
     Dosage: 30 MG, UNK
     Route: 048
  2. ADRENOCORTICOTROPHIC HORMONE [Concomitant]
     Dosage: 7 MG, UNK
     Route: 048
  3. NEORAL [Suspect]
     Indication: SYSTEMIC LUPUS ERYTHEMATOSUS
     Dosage: 150 MG, DAILY
     Route: 048

REACTIONS (9)
  - LOSS OF CONSCIOUSNESS [None]
  - RENAL FAILURE [None]
  - WEIGHT INCREASED [None]
  - GAIT DISTURBANCE [None]
  - CARDIAC FAILURE [None]
  - MUSCULAR WEAKNESS [None]
  - PROTEIN URINE PRESENT [None]
  - OEDEMA [None]
  - NECROTISING FASCIITIS [None]
